FAERS Safety Report 9496149 (Version 1)
Quarter: 2013Q3

REPORT INFORMATION
  Report Type: Spontaneous
  Country: FR (occurrence: FR)
  Receive Date: 20130904
  Receipt Date: 20130904
  Transmission Date: 20140515
  Serious: Yes (Death, Hospitalization, Other)
  Sender: FDA-Public Use
  Company Number: 2013SP006194

PATIENT
  Age: 87 Year
  Sex: Male

DRUGS (17)
  1. AMIODARONE [Suspect]
     Indication: ARRHYTHMIA
     Route: 048
     Dates: end: 20130320
  2. PANTOPRAZOLE [Suspect]
     Indication: PROPHYLAXIS
     Route: 048
     Dates: end: 20130320
  3. ALLOPURINOL [Suspect]
     Indication: PRODUCT USED FOR UNKNOWN INDICATION
     Route: 048
     Dates: end: 20130312
  4. AMOXICILLIN [Suspect]
     Indication: PRODUCT USED FOR UNKNOWN INDICATION
     Dates: start: 20130313, end: 20130317
  5. CLAVULANATE POTASSIUM [Suspect]
     Indication: PRODUCT USED FOR UNKNOWN INDICATION
     Dates: start: 20130313, end: 20130317
  6. PERINDOPRIL [Suspect]
     Indication: HYPERTENSION
     Route: 048
     Dates: end: 20130318
  7. FUROSEMIDE [Suspect]
     Indication: HYPERTENSION
     Route: 048
     Dates: end: 20130318
  8. ALFUZOSIN HYDROCHLORIDE [Suspect]
     Indication: PRODUCT USED FOR UNKNOWN INDICATION
     Route: 048
     Dates: end: 20130312
  9. PARACETAMOL [Suspect]
     Indication: PAIN
     Route: 048
     Dates: end: 201303
  10. PARACETAMOL [Suspect]
     Indication: PAIN
     Route: 048
     Dates: start: 20130314, end: 20130314
  11. PARACETAMOL [Suspect]
     Indication: PAIN
     Route: 048
     Dates: start: 20130315, end: 20130315
  12. PARACETAMOL [Suspect]
     Indication: PAIN
     Route: 048
     Dates: start: 20130316, end: 20130317
  13. ACETYLSALICYLATE LYSINE [Suspect]
     Indication: PLATELET AGGREGATION INHIBITION
     Route: 048
     Dates: end: 20130320
  14. ZOLPIDEM [Suspect]
     Indication: INSOMNIA
     Route: 048
     Dates: end: 20130318
  15. FOLIC ACID [Suspect]
     Indication: FOLATE DEFICIENCY
     Route: 048
     Dates: end: 20130320
  16. PARACETAMOL [Suspect]
     Indication: PAIN
     Route: 042
     Dates: start: 20130317, end: 20130321
  17. LEVOTHYROXINE SODIUM [Suspect]
     Indication: HYPOTHYROIDISM
     Route: 048
     Dates: end: 20130320

REACTIONS (10)
  - Hepatocellular injury [Fatal]
  - Transaminases decreased [Unknown]
  - Analgesic drug level increased [Fatal]
  - Fall [Unknown]
  - Cardiac failure [Unknown]
  - Dyspnoea [Unknown]
  - Oedema [Recovering/Resolving]
  - C-reactive protein increased [Unknown]
  - Renal failure chronic [Unknown]
  - Hyponatraemia [Unknown]
